FAERS Safety Report 8178653-4 (Version None)
Quarter: 2012Q1

REPORT INFORMATION
  Report Type: 
  Country: None (occurrence: None)
  Receive Date: 20120301
  Receipt Date: 20120221
  Transmission Date: 20120608
  Serious: Yes (Hospitalization)
  Sender: FDA-Public Use
  Company Number: ZA-ASTRAZENECA-2012SE13125

PATIENT
  Age: 50 Year
  Sex: Female

DRUGS (2)
  1. PLENDIL [Suspect]
     Indication: HYPERTENSION
     Route: 048
     Dates: start: 20120103, end: 20120104
  2. LOPRESSOR [Concomitant]
     Indication: HYPERTENSION
     Route: 048

REACTIONS (4)
  - FLUSHING [None]
  - PALPITATIONS [None]
  - ANXIETY [None]
  - MENOPAUSAL SYMPTOMS [None]
